FAERS Safety Report 8103211-7 (Version None)
Quarter: 2012Q1

REPORT INFORMATION
  Report Type: 
  Country: None (occurrence: None)
  Receive Date: 20120201
  Receipt Date: 20120130
  Transmission Date: 20120608
  Serious: No
  Sender: FDA-Public Use
  Company Number: US-JNJFOC-20120113482

PATIENT
  Sex: Female

DRUGS (4)
  1. RISPERDAL [Suspect]
     Indication: SCHIZOPHRENIA
     Route: 065
  2. INVEGA SUSTENNA [Suspect]
     Indication: SCHIZOPHRENIA
     Route: 030
     Dates: start: 20110101
  3. SEROQUEL [Concomitant]
     Indication: INSOMNIA
     Route: 065
  4. DEPAKOTE [Concomitant]
     Route: 065

REACTIONS (4)
  - HEADACHE [None]
  - VISION BLURRED [None]
  - THERAPEUTIC RESPONSE INCREASED [None]
  - ABNORMAL SENSATION IN EYE [None]
